FAERS Safety Report 13586136 (Version 1)
Quarter: 2017Q2

REPORT INFORMATION
  Report Type: Spontaneous
  Country: US (occurrence: US)
  Receive Date: 20170526
  Receipt Date: 20170526
  Transmission Date: 20170830
  Serious: Yes (Disabling, Other)
  Sender: FDA-Public Use
  Company Number: None

PATIENT
  Age: 63 Year
  Sex: Male
  Weight: 80.81 kg

DRUGS (13)
  1. LOW DOSE ASPIRIN [Concomitant]
     Active Substance: ASPIRIN
  2. TIZANIDINE. [Concomitant]
     Active Substance: TIZANIDINE
  3. LUPRON DEPOT-PED [Suspect]
     Active Substance: LEUPROLIDE ACETATE
     Indication: PROSTATE CANCER
  4. BIOTIN [Concomitant]
     Active Substance: BIOTIN
  5. ALPRAZOLAM. [Concomitant]
     Active Substance: ALPRAZOLAM
  6. MULTIVITAMIN [Concomitant]
     Active Substance: VITAMINS
  7. OXYCODONE/ACETAMINOPHN [Concomitant]
  8. XANAX [Concomitant]
     Active Substance: ALPRAZOLAM
  9. ATRIPLA [Concomitant]
     Active Substance: EFAVIRENZ\EMTRICITABINE\TENOFOVIR DISOPROXIL FUMARATE
  10. SERTALINE [Concomitant]
     Active Substance: SERTRALINE HYDROCHLORIDE
  11. TIZIDINE [Concomitant]
  12. QUETIAPINE. [Concomitant]
     Active Substance: QUETIAPINE
  13. LOSARTIN [Concomitant]
     Active Substance: LOSARTAN

REACTIONS (3)
  - Abdominal pain upper [None]
  - Fatigue [None]
  - Nausea [None]

NARRATIVE: CASE EVENT DATE: 20151015
